FAERS Safety Report 18109833 (Version 2)
Quarter: 2020Q3

REPORT INFORMATION
  Report Type: Spontaneous
  Country: IT (occurrence: IT)
  Receive Date: 20200804
  Receipt Date: 20200807
  Transmission Date: 20201103
  Serious: Yes (Hospitalization, Other)
  Sender: FDA-Public Use
  Company Number: IT-OTSUKA-2020_018413

PATIENT
  Age: 19 Year
  Sex: Female

DRUGS (2)
  1. ABILIFY [Suspect]
     Active Substance: ARIPIPRAZOLE
     Indication: AFFECTIVE DISORDER
     Dosage: 15 MG, UNK
     Route: 065
     Dates: start: 201908
  2. ABILIFY [Suspect]
     Active Substance: ARIPIPRAZOLE
     Dosage: UNK (24 TABLETS OF ABILIFY 15 MG)
     Route: 065
     Dates: start: 20200726

REACTIONS (7)
  - Transaminases increased [Recovering/Resolving]
  - Urine amphetamine positive [Unknown]
  - Abdominal pain [Unknown]
  - Drug screen positive [Unknown]
  - Intentional overdose [Unknown]
  - Blood creatine phosphokinase increased [Recovering/Resolving]
  - Product use in unapproved indication [Unknown]

NARRATIVE: CASE EVENT DATE: 201908
